FAERS Safety Report 8954896 (Version 1)
Quarter: 2012Q4

REPORT INFORMATION
  Report Type: 
  Country: GT (occurrence: GT)
  Receive Date: 20121210
  Receipt Date: 20121210
  Transmission Date: 20130627
  Serious: Yes (Other)
  Sender: FDA-Public Use
  Company Number: GT-BAYER-2012-125635

PATIENT

DRUGS (1)
  1. ANTIHEMOPHILIC FACTOR (RECOMBINANT), SUCROSE FORMULATED FS [Suspect]

REACTIONS (5)
  - Temperature regulation disorder [None]
  - Hypothermia [None]
  - Pyrexia [None]
  - Vomiting [None]
  - Abdominal pain upper [None]
